FAERS Safety Report 8594372 (Version 5)
Quarter: 2013Q3

REPORT INFORMATION
  Report Type: Report from Study
  Country: FR (occurrence: FR)
  Receive Date: 20120604
  Receipt Date: 20130906
  Transmission Date: 20140515
  Serious: Yes (Other)
  Sender: FDA-Public Use
  Company Number: FR-CELGENEUS-056-21880-12052510

PATIENT
  Age: 56 Year
  Sex: Female

DRUGS (11)
  1. REVLIMID [Suspect]
     Indication: PLASMA CELL MYELOMA
     Dosage: 15 MILLIGRAM
     Route: 048
     Dates: start: 20120216, end: 20120311
  2. REVLIMID [Suspect]
     Dosage: 15 MILLIGRAM
     Route: 048
     Dates: start: 20120326
  3. REVLIMID [Suspect]
     Dosage: 15 MILLIGRAM
     Route: 048
     Dates: start: 20120423, end: 20120513
  4. REVLIMID [Suspect]
     Dosage: 15 MILLIGRAM
     Route: 048
     Dates: start: 20120521, end: 20120610
  5. REVLIMID [Suspect]
     Dosage: 15 MILLIGRAM
     Route: 048
     Dates: start: 20120621, end: 20120711
  6. REVLIMID [Suspect]
     Dosage: 15 MILLIGRAM
     Route: 048
     Dates: start: 20120719, end: 20120808
  7. REVLIMID [Suspect]
     Dosage: 15 MILLIGRAM
     Route: 048
     Dates: start: 20120823, end: 20120912
  8. KIOVIG [Concomitant]
     Indication: HYPOGAMMAGLOBULINAEMIA
     Dosage: 1 GRAM
     Route: 041
     Dates: start: 20120126
  9. GRANOCYTE [Concomitant]
     Indication: NEUTROPENIA
     Dosage: 4.8571 INTERNATIONAL UNITS THOUSANDS
     Route: 058
     Dates: start: 20120227
  10. ERYTHROPOETIN [Concomitant]
     Indication: PRODUCT USED FOR UNKNOWN INDICATION
     Route: 065
  11. PREDNISONE [Concomitant]
     Indication: PLASMA CELL MYELOMA
     Route: 048
     Dates: start: 20120823, end: 20120826

REACTIONS (1)
  - Myelodysplastic syndrome [Not Recovered/Not Resolved]
